FAERS Safety Report 12360161 (Version 6)
Quarter: 2019Q3

REPORT INFORMATION
  Report Type: Report from Study
  Country: CN (occurrence: CN)
  Receive Date: 20160512
  Receipt Date: 20190712
  Transmission Date: 20191004
  Serious: Yes (Other)
  Sender: FDA-Public Use
  Company Number: CN-ROCHE-1734023

PATIENT
  Age: 67 Year
  Sex: Male
  Weight: 74 kg

DRUGS (3)
  1. OXALIPLATIN. [Suspect]
     Active Substance: OXALIPLATIN
     Indication: RECTAL CANCER
     Route: 041
  2. OXALIPLATIN. [Suspect]
     Active Substance: OXALIPLATIN
     Route: 041
  3. AVASTIN [Suspect]
     Active Substance: BEVACIZUMAB
     Indication: RECTAL CANCER
     Route: 041
     Dates: start: 20150929

REACTIONS (11)
  - Vitreous floaters [Unknown]
  - Dental caries [Unknown]
  - Myalgia [Unknown]
  - Dysphonia [Recovering/Resolving]
  - Immunodeficiency [Unknown]
  - Asthenia [Unknown]
  - Pyrexia [Unknown]
  - Dysphonia [Not Recovered/Not Resolved]
  - Visual impairment [Unknown]
  - Tumour marker increased [Unknown]
  - Decreased appetite [Unknown]

NARRATIVE: CASE EVENT DATE: 201601
